FAERS Safety Report 24124487 (Version 3)
Quarter: 2024Q3

REPORT INFORMATION
  Report Type: Spontaneous
  Country: US (occurrence: US)
  Receive Date: 20240723
  Receipt Date: 20240819
  Transmission Date: 20241017
  Serious: No
  Sender: TRIS PHARM
  Company Number: US-TRIS PHARMA, INC.-24US011574

PATIENT

DRUGS (2)
  1. QUILLIVANT XR [Suspect]
     Active Substance: METHYLPHENIDATE HYDROCHLORIDE
     Indication: Attention deficit hyperactivity disorder
     Dosage: 2 MILLILITRE, QD
     Route: 048
  2. QUILLIVANT XR [Suspect]
     Active Substance: METHYLPHENIDATE HYDROCHLORIDE
     Dosage: 4 MILLILITRE, QD
     Route: 048
     Dates: start: 20240614

REACTIONS (9)
  - Eating disorder [Unknown]
  - Intentional product use issue [Unknown]
  - Product use issue [Unknown]
  - Product packaging quantity issue [Unknown]
  - Product preparation error [Unknown]
  - Liquid product physical issue [Unknown]
  - Off label use [None]
  - Weight decreased [Unknown]
  - Initial insomnia [Unknown]

NARRATIVE: CASE EVENT DATE: 20240614
